FAERS Safety Report 8586500-1 (Version None)
Quarter: 2012Q3

REPORT INFORMATION
  Report Type: 
  Country: None (occurrence: None)
  Receive Date: 20120810
  Receipt Date: 20120802
  Transmission Date: 20120928
  Serious: Yes (Hospitalization)
  Sender: FDA-Public Use
  Company Number: JP-VERTEX PHARMACEUTICALS INC.-AE-2012-011736

PATIENT
  Age: 42 Year
  Sex: Male

DRUGS (4)
  1. CLOBETASOL PROPIONATE [Concomitant]
     Route: 061
     Dates: start: 20120519, end: 20120526
  2. TELAVIC (TELAPREVIR) [Suspect]
     Indication: HEPATITIS C
     Route: 048
     Dates: start: 20120512, end: 20120519
  3. PEGINTERFERON ALFA-2B [Concomitant]
     Route: 058
     Dates: end: 20120512
  4. RIBAVIRIN [Concomitant]
     Route: 048
     Dates: end: 20120519

REACTIONS (1)
  - ERYTHEMA MULTIFORME [None]
